FAERS Safety Report 9130726 (Version 4)
Quarter: 2013Q3

REPORT INFORMATION
  Report Type: Spontaneous
  Country: AU (occurrence: AU)
  Receive Date: 20130301
  Receipt Date: 20130703
  Transmission Date: 20140515
  Serious: Yes (Death, Life-Threatening, Hospitalization, Disabling)
  Sender: FDA-Public Use
  Company Number: AU-CELGENEUS-008-21880-13022600

PATIENT
  Age: 83 Year
  Sex: Male
  Weight: 80 kg

DRUGS (13)
  1. REVLIMID [Suspect]
     Indication: PLASMA CELL MYELOMA
     Route: 048
     Dates: start: 20130118, end: 20130218
  2. THALIDOMIDE [Suspect]
     Indication: PLASMA CELL MYELOMA
     Dosage: 50 MILLIGRAM
     Route: 048
     Dates: start: 20120615, end: 20121116
  3. CYCLOPHOSPHAMIDE [Concomitant]
     Indication: PLASMA CELL MYELOMA
     Route: 065
  4. DEXAMETHASONE [Concomitant]
     Indication: PLASMA CELL MYELOMA
     Route: 065
  5. DARBEPOETIN [Concomitant]
     Indication: ANAEMIA
     Route: 065
  6. PANTOPRAZOLE [Concomitant]
     Indication: GASTROOESOPHAGEAL REFLUX DISEASE
     Dosage: 40 MILLIGRAM
     Route: 065
  7. ALLOPURINOL [Concomitant]
     Indication: BLOOD URIC ACID
     Dosage: 100 MILLIGRAM
     Route: 065
  8. METOPROLOL [Concomitant]
     Indication: BLOOD PRESSURE
     Dosage: 50 MILLIGRAM
     Route: 065
  9. DIGOXIN [Concomitant]
     Indication: CARDIAC DISORDER
     Route: 065
  10. AMIODARONE [Concomitant]
     Indication: CARDIAC DISORDER
     Dosage: 200 MILLIGRAM
     Route: 065
  11. WARFARIN [Concomitant]
     Indication: ATRIAL FIBRILLATION
     Route: 065
  12. THYROXIN [Concomitant]
     Indication: HYPOTHYROIDISM
     Route: 065
  13. NORSPAN [Concomitant]
     Indication: PAIN
     Route: 061

REACTIONS (3)
  - Death [Fatal]
  - Renal impairment [Recovering/Resolving]
  - General physical health deterioration [Not Recovered/Not Resolved]
